FAERS Safety Report 6825395-0 (Version None)
Quarter: 2010Q3

REPORT INFORMATION
  Report Type: 
  Country: None (occurrence: None)
  Receive Date: 20100708
  Receipt Date: 20070108
  Transmission Date: 20110219
  Serious: No
  Sender: FDA-Public Use
  Company Number: US-PFIZER INC-2007002758

PATIENT
  Sex: Male
  Weight: 70.31 kg

DRUGS (2)
  1. CHANTIX [Suspect]
     Indication: SMOKING CESSATION THERAPY
     Dates: start: 20070102
  2. VICODIN [Concomitant]
     Indication: ARTHRITIS

REACTIONS (2)
  - DRUG INEFFECTIVE [None]
  - NAUSEA [None]
